FAERS Safety Report 9675188 (Version 1)
Quarter: 2013Q4

REPORT INFORMATION
  Report Type: Spontaneous
  Country: US (occurrence: None)
  Receive Date: 20131105
  Receipt Date: 20131105
  Transmission Date: 20140711
  Serious: Yes (Other)
  Sender: FDA-Public Use
  Company Number: 2013HINLIT0203

PATIENT
  Age: 54 Year
  Sex: Male

DRUGS (2)
  1. LITHIUM (LITHIUM) UNKNOWN [Suspect]
  2. OMNIPAQUE [Suspect]

REACTIONS (8)
  - Thyrotoxic crisis [None]
  - Agitation [None]
  - Gait disturbance [None]
  - Tachycardia [None]
  - Blood pressure increased [None]
  - Flushing [None]
  - Tenderness [None]
  - Pneumonia aspiration [None]
